FAERS Safety Report 18270752 (Version 8)
Quarter: 2023Q2

REPORT INFORMATION
  Report Type: Report from Study
  Country: JP (occurrence: JP)
  Receive Date: 20200915
  Receipt Date: 20230404
  Transmission Date: 20230722
  Serious: Yes (Hospitalization, Other)
  Sender: FDA-Public Use
  Company Number: JP-JNJFOC-A-CH2019-186697

PATIENT
  Age: 15 Year
  Sex: Female
  Weight: 68 kg

DRUGS (30)
  1. OPSUMIT [Suspect]
     Active Substance: MACITENTAN
     Indication: Pulmonary arterial hypertension
     Dosage: 10 MG, QD
     Route: 048
     Dates: start: 20181115, end: 20190706
  2. OPSUMIT [Suspect]
     Active Substance: MACITENTAN
     Route: 048
     Dates: start: 20211216
  3. UPTRAVI [Suspect]
     Active Substance: SELEXIPAG
     Indication: Pulmonary arterial hypertension
     Dosage: 0.2 MG, QD
     Route: 048
     Dates: start: 20190312, end: 20190317
  4. UPTRAVI [Suspect]
     Active Substance: SELEXIPAG
     Route: 048
     Dates: start: 20190318, end: 20190403
  5. UPTRAVI [Suspect]
     Active Substance: SELEXIPAG
     Dosage: 0.8MG AND 0.6MG/DAY
     Route: 048
     Dates: start: 20190619, end: 20190705
  6. UPTRAVI [Suspect]
     Active Substance: SELEXIPAG
     Route: 048
     Dates: start: 20190706, end: 20191226
  7. UPTRAVI [Suspect]
     Active Substance: SELEXIPAG
     Route: 048
     Dates: start: 20191227, end: 20200105
  8. UPTRAVI [Suspect]
     Active Substance: SELEXIPAG
     Route: 048
     Dates: start: 20190404, end: 20190416
  9. UPTRAVI [Suspect]
     Active Substance: SELEXIPAG
     Route: 048
     Dates: start: 20190417, end: 20190507
  10. UPTRAVI [Suspect]
     Active Substance: SELEXIPAG
     Route: 048
     Dates: start: 20190508, end: 20190526
  11. UPTRAVI [Suspect]
     Active Substance: SELEXIPAG
     Route: 048
     Dates: start: 20190527, end: 20190618
  12. UPTRAVI [Suspect]
     Active Substance: SELEXIPAG
     Dosage: DOSE DECREASE
     Route: 048
  13. UPTRAVI [Suspect]
     Active Substance: SELEXIPAG
     Route: 048
     Dates: start: 20200106, end: 20200126
  14. UPTRAVI [Suspect]
     Active Substance: SELEXIPAG
     Route: 048
     Dates: start: 20200127, end: 20200308
  15. UPTRAVI [Suspect]
     Active Substance: SELEXIPAG
     Route: 048
     Dates: start: 20200309
  16. UPTRAVI [Suspect]
     Active Substance: SELEXIPAG
     Route: 048
     Dates: start: 2021
  17. UPTRAVI [Suspect]
     Active Substance: SELEXIPAG
     Route: 048
     Dates: start: 20211028, end: 20211216
  18. BERAPROST SODIUM [Suspect]
     Active Substance: BERAPROST SODIUM
     Indication: Portopulmonary hypertension
     Dosage: 20 MCG, TID
     Route: 048
     Dates: start: 20181112, end: 20190312
  19. AZOSEMIDE [Suspect]
     Active Substance: AZOSEMIDE
     Indication: Pulmonary hypertension
     Dosage: 60 MG, QD
     Route: 048
     Dates: start: 20190706
  20. AZOSEMIDE [Suspect]
     Active Substance: AZOSEMIDE
     Indication: Fluid retention
  21. AZOSEMIDE [Suspect]
     Active Substance: AZOSEMIDE
     Indication: Cardiac failure congestive
  22. URSODIOL [Concomitant]
     Active Substance: URSODIOL
  23. ZINC [Concomitant]
     Active Substance: ZINC
  24. LACTULOSE [Concomitant]
     Active Substance: LACTULOSE
  25. LIVACT [AMINO ACIDS NOS] [Concomitant]
  26. MENATETRENONE [Concomitant]
     Active Substance: MENATETRENONE
  27. JUVELA [Concomitant]
     Active Substance: .ALPHA.-TOCOPHEROL\RETINOL
  28. AMOXICILLIN [Concomitant]
     Active Substance: AMOXICILLIN
  29. MIYA-BM [Concomitant]
     Active Substance: CLOSTRIDIUM BUTYRICUM SPORES STRAIN M-55
     Dosage: 3 DF
  30. REBAMIPIDE [Concomitant]
     Active Substance: REBAMIPIDE
     Indication: Gastritis
     Route: 065
     Dates: start: 20191105

REACTIONS (13)
  - Portopulmonary hypertension [Recovering/Resolving]
  - Condition aggravated [Recovering/Resolving]
  - Pancytopenia [Not Recovered/Not Resolved]
  - Pulmonary arterial pressure increased [Recovering/Resolving]
  - Pulmonary hypertension [Recovered/Resolved]
  - Liver transplant [Unknown]
  - Fluid retention [Recovering/Resolving]
  - Blood pressure increased [Recovering/Resolving]
  - Cardiac failure congestive [Recovered/Resolved]
  - Hypokalaemia [Recovered/Resolved]
  - Flushing [Recovering/Resolving]
  - Headache [Recovered/Resolved]
  - Off label use [Unknown]

NARRATIVE: CASE EVENT DATE: 20181115
